FAERS Safety Report 5962512-9 (Version None)
Quarter: 2008Q4

REPORT INFORMATION
  Report Type: 
  Country: None (occurrence: None)
  Receive Date: 20081121
  Receipt Date: 20081115
  Transmission Date: 20090506
  Serious: Yes (Other)
  Sender: FDA-Public Use
  Company Number: PHHY2008FR28694

PATIENT
  Sex: Male

DRUGS (1)
  1. STALEVO 100 [Suspect]
     Dosage: UNK

REACTIONS (2)
  - COMPULSIVE SEXUAL BEHAVIOUR [None]
  - PATHOLOGICAL GAMBLING [None]
